FAERS Safety Report 8395443-8 (Version None)
Quarter: 2012Q2

REPORT INFORMATION
  Report Type: 
  Country: None (occurrence: None)
  Receive Date: 20120530
  Receipt Date: 20120521
  Transmission Date: 20120825
  Serious: Yes (Hospitalization)
  Sender: FDA-Public Use
  Company Number: AU-VERTEX PHARMACEUTICALS INC.-000000000000000643

PATIENT
  Sex: Male
  Weight: 75 kg

DRUGS (11)
  1. LOPERAMIDE [Concomitant]
  2. FEXOFENADINE HCL [Concomitant]
  3. PEGINTERFERON ALFA [Concomitant]
     Indication: HEPATITIS C
     Dosage: DOSAGE FORM: INJECTION
     Route: 058
     Dates: start: 20120309
  4. ADVANTAN [Concomitant]
  5. NEUROFEN [Concomitant]
  6. TELAPREVIR [Suspect]
     Indication: HEPATITIS C
     Dosage: DOSAGE FORM: TABLET
     Route: 048
     Dates: start: 20120309, end: 20120430
  7. RIBAVIRIN [Concomitant]
     Indication: HEPATITIS C
     Dosage: DOSAGE FORM: TABLET
     Route: 048
     Dates: start: 20120309
  8. PHENERGAN [Concomitant]
  9. TEMAZEPAM [Concomitant]
  10. ALBALON [Concomitant]
  11. PERIACTIN [Concomitant]

REACTIONS (2)
  - INTESTINAL OBSTRUCTION [None]
  - VOMITING [None]
